FAERS Safety Report 9254046 (Version 1)
Quarter: 2013Q2

REPORT INFORMATION
  Report Type: Spontaneous
  Country: US (occurrence: None)
  Receive Date: 20130424
  Receipt Date: 20130424
  Transmission Date: 20140414
  Serious: Yes (Life-Threatening, Hospitalization)
  Sender: FDA-Public Use
  Company Number: None

PATIENT
  Age: 30 Year
  Sex: Male
  Weight: 110.5 kg

DRUGS (1)
  1. WARFARIN [Suspect]
     Indication: DEEP VEIN THROMBOSIS
     Dosage: MG  PO
     Route: 048
     Dates: start: 20120627, end: 20121120

REACTIONS (5)
  - Renal failure [None]
  - International normalised ratio increased [None]
  - Renal haemorrhage [None]
  - Back pain [None]
  - Abdominal pain [None]
